FAERS Safety Report 8224570-0 (Version None)
Quarter: 2012Q1

REPORT INFORMATION
  Report Type: 
  Country: None (occurrence: None)
  Receive Date: 20120319
  Receipt Date: 20120305
  Transmission Date: 20120608
  Serious: Yes (Hospitalization)
  Sender: FDA-Public Use
  Company Number: UTC-015354

PATIENT
  Age: 72 Year
  Sex: Female
  Weight: 77.2 kg

DRUGS (2)
  1. REMODULIN [Suspect]
     Indication: PULMONARY ARTERIAL HYPERTENSION
     Dosage: 77.76 UG/KG (0.054 UG/KG, 1 IN 1 MIN), SUBCUTANEOUS .022 CC/HR, SUBCUTANEOUS
     Route: 058
     Dates: start: 20100402
  2. REVATIO [Concomitant]

REACTIONS (2)
  - GASTROINTESTINAL HAEMORRHAGE [None]
  - DIALYSIS [None]
